FAERS Safety Report 11485111 (Version 1)
Quarter: 2015Q3

REPORT INFORMATION
  Report Type: Spontaneous
  Country: GB (occurrence: GB)
  Receive Date: 20150909
  Receipt Date: 20150909
  Transmission Date: 20151125
  Serious: Yes (Hospitalization, Other)
  Sender: FDA-Public Use
  Company Number: GB-VIIV HEALTHCARE LIMITED-GB2015125800

PATIENT
  Age: 35 Year
  Sex: Male

DRUGS (5)
  1. TRIUMEQ [Suspect]
     Active Substance: ABACAVIR SULFATE\DOLUTEGRAVIR SODIUM\LAMIVUDINE
     Indication: HIV INFECTION
     Dosage: 50MG/600MG/300MG
     Route: 048
     Dates: start: 20150814
  2. PREGABALIN. [Concomitant]
     Active Substance: PREGABALIN
     Dosage: 200MG IN THE MORNING, 150MG AT LUNCH, 150MG AT TEA TIME
  3. LAMOTRIGINE. [Concomitant]
     Active Substance: LAMOTRIGINE
     Dosage: IN THE MORNING
  4. SERTRALINE [Concomitant]
     Active Substance: SERTRALINE HYDROCHLORIDE
     Dosage: 50MG OR 100MG
  5. RISPERIDON [Concomitant]
     Active Substance: RISPERIDONE

REACTIONS (4)
  - Mania [Not Recovered/Not Resolved]
  - Acute psychosis [Not Recovered/Not Resolved]
  - Agitation [Not Recovered/Not Resolved]
  - Aggression [Not Recovered/Not Resolved]

NARRATIVE: CASE EVENT DATE: 20150820
